FAERS Safety Report 10129846 (Version 2)
Quarter: 2014Q2

REPORT INFORMATION
  Report Type: Report from Study
  Country: US (occurrence: US)
  Receive Date: 20140428
  Receipt Date: 20140605
  Transmission Date: 20141212
  Serious: Yes (Other)
  Sender: FDA-Public Use
  Company Number: PHEH2014US008145

PATIENT
  Age: 59 Year
  Sex: Female
  Weight: 53.97 kg

DRUGS (9)
  1. GILENYA [Suspect]
     Dosage: 0.5 MG, QD
     Route: 048
  2. CYMBALTA [Concomitant]
  3. SYNTHROID [Concomitant]
  4. NORVASC [Concomitant]
  5. NADOLOL [Concomitant]
  6. BACLOFEN [Concomitant]
  7. ZOCOR [Concomitant]
  8. ELAVIL [Concomitant]
  9. LASIX [Concomitant]

REACTIONS (1)
  - Breast cancer [Recovering/Resolving]
